FAERS Safety Report 7155059-8 (Version None)
Quarter: 2010Q4

REPORT INFORMATION
  Report Type: 
  Country: None (occurrence: None)
  Receive Date: 20101214
  Receipt Date: 20100310
  Transmission Date: 20110411
  Serious: No
  Sender: FDA-Public Use
  Company Number: US-AMGEN-QUU372838

PATIENT

DRUGS (7)
  1. ENBREL [Suspect]
     Indication: RHEUMATOID ARTHRITIS
     Dosage: 50 MG, QWK
     Route: 058
     Dates: start: 20091103, end: 20091116
  2. UNSPECIFIED MEDICATION [Concomitant]
     Dosage: UNK UNK, UNK
     Dates: start: 20080813
  3. FOLIC ACID [Concomitant]
     Dosage: UNK UNK, UNK
     Dates: start: 20081119
  4. AZATHIOPRINE [Concomitant]
     Dosage: UNK UNK, UNK
     Dates: start: 20090506, end: 20090701
  5. HYDROCODONE BITARTRATE AND ACETAMINOPHEN [Concomitant]
     Dosage: UNK UNK, UNK
     Dates: start: 20080813
  6. METHOTREXATE [Concomitant]
     Dosage: UNK UNK, UNK
     Dates: start: 20081119, end: 20090506
  7. PROCHLORPERAZINE [Concomitant]
     Dosage: UNK UNK, UNK
     Dates: start: 20090119

REACTIONS (3)
  - CHEST DISCOMFORT [None]
  - PAIN IN EXTREMITY [None]
  - PAIN IN JAW [None]
